FAERS Safety Report 5755286-8 (Version None)
Quarter: 2008Q2

REPORT INFORMATION
  Report Type: 
  Country: None (occurrence: None)
  Receive Date: 20080528
  Receipt Date: 20080521
  Transmission Date: 20081010
  Serious: Yes (Death, Hospitalization)
  Sender: FDA-Public Use
  Company Number: 008-C5013-07120750

PATIENT
  Age: 64 Year
  Sex: Male

DRUGS (2)
  1. CC-5013 (LENALIDOMIDE) (CAPSULES) [Suspect]
     Indication: MULTIPLE MYELOMA
     Dosage: 25 MG, DAILY, ORAL
     Route: 048
     Dates: start: 20071129, end: 20071207
  2. DEXAMETHASONE TAB [Suspect]
     Indication: MULTIPLE MYELOMA
     Dosage: 40 MG, DAILY, ORAL
     Route: 048
     Dates: start: 20071129, end: 20071208

REACTIONS (10)
  - DECREASED APPETITE [None]
  - DIARRHOEA [None]
  - HAEMATOCRIT DECREASED [None]
  - MUCOSAL DRYNESS [None]
  - NEUTROPENIC SEPSIS [None]
  - ORAL CANDIDIASIS [None]
  - PLATELET COUNT DECREASED [None]
  - PNEUMONIA [None]
  - RENAL FAILURE ACUTE [None]
  - VOMITING [None]
